FAERS Safety Report 9408776 (Version 1)
Quarter: 2013Q3

REPORT INFORMATION
  Report Type: Spontaneous
  Country: US (occurrence: US)
  Receive Date: 20130719
  Receipt Date: 20130719
  Transmission Date: 20140515
  Serious: No
  Sender: FDA-Public Use
  Company Number: US-B.I. PHARMACEUTICALS,INC./RIDGEFIELD-2013-BI-20187BP

PATIENT
  Age: 77 Year
  Sex: Male

DRUGS (1)
  1. FLOMAX CAPSULES [Suspect]
     Indication: PRODUCT USED FOR UNKNOWN INDICATION
     Dosage: 0.4 MG
     Route: 048
     Dates: start: 2011, end: 201306

REACTIONS (3)
  - Pruritus [Recovered/Resolved]
  - Paraesthesia [Recovered/Resolved]
  - Formication [Recovered/Resolved]
